FAERS Safety Report 15489326 (Version 2)
Quarter: 2018Q4

REPORT INFORMATION
  Report Type: Spontaneous
  Country: FR (occurrence: FR)
  Receive Date: 20181011
  Receipt Date: 20181106
  Transmission Date: 20190205
  Serious: Yes (Hospitalization)
  Sender: FDA-Public Use
  Company Number: FR-009507513-1810FRA003583

PATIENT
  Age: 81 Year
  Sex: Female

DRUGS (12)
  1. ZOPHREN (ONDANSETRON HYDROCHLORIDE) [Suspect]
     Active Substance: ONDANSETRON HYDROCHLORIDE
     Indication: PREMEDICATION
     Dosage: 8 MG, UNK
     Route: 042
     Dates: start: 20180816, end: 20180816
  2. OXALIPLATIN. [Suspect]
     Active Substance: OXALIPLATIN
     Indication: COLORECTAL CANCER METASTATIC
     Dosage: 100 MILLIGRAM, CYCLICAL
     Route: 042
     Dates: start: 20180816, end: 20180816
  3. SOLU-MEDROL [Suspect]
     Active Substance: METHYLPREDNISOLONE SODIUM SUCCINATE
     Indication: PREMEDICATION
     Dosage: 60 MG, UNK
     Route: 042
     Dates: start: 20180816, end: 20180816
  4. FOSAPREPITANT DIMEGLUMINE. [Suspect]
     Active Substance: FOSAPREPITANT DIMEGLUMINE
     Indication: PREMEDICATION
     Dosage: 125 MILLIGRAM
     Route: 042
     Dates: start: 20180816, end: 20180816
  5. IVEMEND [Suspect]
     Active Substance: FOSAPREPITANT DIMEGLUMINE
     Indication: PREMEDICATION
     Dosage: 125 MG, UNK
     Route: 042
     Dates: start: 20180816, end: 20180816
  6. AMIODARONE [Concomitant]
     Active Substance: AMIODARONE
  7. POLARAMINE [Suspect]
     Active Substance: DEXCHLORPHENIRAMINE MALEATE
     Indication: PREMEDICATION
     Dosage: 5 MG, UNK
     Route: 042
     Dates: start: 20180816, end: 20180816
  8. FLUOROURACIL. [Suspect]
     Active Substance: FLUOROURACIL
     Indication: COLORECTAL CANCER METASTATIC
     Dosage: 1680 MG/M2, CYCLICAL
     Route: 042
     Dates: start: 20180816, end: 20180816
  9. AVASTIN [Suspect]
     Active Substance: BEVACIZUMAB
     Indication: COLORECTAL CANCER METASTATIC
     Dosage: 5 MILLIGRAM/KILOGRAM, CYCLICAL
     Route: 042
     Dates: start: 20180816, end: 20180816
  10. SERESTA [Concomitant]
     Active Substance: OXAZEPAM
  11. CETIRIZINE HYDROCHLORIDE. [Concomitant]
     Active Substance: CETIRIZINE HYDROCHLORIDE
     Indication: PREMEDICATION
     Dosage: 1 DOSAGE FORM
  12. PRADAXA [Concomitant]
     Active Substance: DABIGATRAN ETEXILATE MESYLATE

REACTIONS (2)
  - Hypertension [Recovered/Resolved]
  - Hyperthermia [Recovered/Resolved]

NARRATIVE: CASE EVENT DATE: 20180816
